FAERS Safety Report 7397602-X (Version None)
Quarter: 2011Q2

REPORT INFORMATION
  Report Type: 
  Country: None (occurrence: None)
  Receive Date: 20110406
  Receipt Date: 20110330
  Transmission Date: 20111010
  Serious: Yes (Other)
  Sender: FDA-Public Use
  Company Number: CH-MERCK-1103USA04000

PATIENT
  Age: 9 Month
  Sex: Male

DRUGS (3)
  1. SINGULAIR [Suspect]
     Indication: ASTHMA
     Route: 048
     Dates: start: 20110201
  2. MEFENACID [Suspect]
     Route: 054
  3. VENTOLIN [Concomitant]
     Indication: ASTHMA
     Route: 055

REACTIONS (3)
  - GRAND MAL CONVULSION [None]
  - EYE MOVEMENT DISORDER [None]
  - POSTURE ABNORMAL [None]
